FAERS Safety Report 7516262-8 (Version None)
Quarter: 2011Q2

REPORT INFORMATION
  Report Type: 
  Country: None (occurrence: None)
  Receive Date: 20110601
  Receipt Date: 20110517
  Transmission Date: 20111010
  Serious: Yes (Other)
  Sender: FDA-Public Use
  Company Number: PHHY2011US42364

PATIENT
  Sex: Female

DRUGS (2)
  1. GLEEVEC [Suspect]
     Indication: CHRONIC MYELOID LEUKAEMIA
     Dosage: 400 MG, QD
     Route: 048
     Dates: start: 20110105
  2. GLEEVEC [Suspect]
     Dosage: 400 MG, QOD
     Route: 048

REACTIONS (3)
  - NAUSEA [None]
  - HEPATIC LESION [None]
  - WHITE BLOOD CELL COUNT ABNORMAL [None]
